FAERS Safety Report 6828094-4 (Version None)
Quarter: 2010Q3

REPORT INFORMATION
  Report Type: 
  Country: None (occurrence: None)
  Receive Date: 20100709
  Receipt Date: 20070129
  Transmission Date: 20110219
  Serious: No
  Sender: FDA-Public Use
  Company Number: US-PFIZER INC-2007008872

PATIENT
  Sex: Female
  Weight: 59.87 kg

DRUGS (6)
  1. CHANTIX [Suspect]
     Indication: SMOKING CESSATION THERAPY
     Route: 048
  2. ALDOMET [Concomitant]
     Indication: HYPERTENSION
     Route: 048
  3. CARDIZEM CD [Concomitant]
     Indication: HYPERTENSION
     Route: 048
  4. LOZOL [Concomitant]
     Indication: HYPERTENSION
     Route: 048
  5. ZETIA [Concomitant]
     Indication: BLOOD CHOLESTEROL INCREASED
     Route: 048
  6. ALBUTEROL [Concomitant]
     Indication: ASTHMA

REACTIONS (3)
  - ABNORMAL DREAMS [None]
  - INSOMNIA [None]
  - NAUSEA [None]
